FAERS Safety Report 18646665 (Version 2)
Quarter: 2020Q4

REPORT INFORMATION
  Report Type: Report from Study
  Country: None (occurrence: BE)
  Receive Date: 20201221
  Receipt Date: 20201225
  Transmission Date: 20210114
  Serious: Yes (Hospitalization, Other)
  Sender: FDA-Public Use
  Company Number: BE-ABBVIE-20K-013-3695797-00

PATIENT
  Age: 73 Year
  Sex: Male

DRUGS (13)
  1. DAVITAMON [Concomitant]
     Active Substance: VITAMIN A PALMITATE
     Indication: PRODUCT USED FOR UNKNOWN INDICATION
  2. DUODOPA [Suspect]
     Active Substance: CARBIDOPA\LEVODOPA
     Indication: PARKINSON^S DISEASE
     Dosage: UNKNOWN DOSAGES
     Route: 050
     Dates: start: 20200128, end: 20200520
  3. OLMESARTAN [Concomitant]
     Active Substance: OLMESARTAN
     Indication: PRODUCT USED FOR UNKNOWN INDICATION
  4. LEVODOPA/BENSERAZIDE (PROLOPA DISP.) [Concomitant]
     Indication: PARKINSON^S DISEASE
     Route: 048
  5. ACETYLSALICYLIC ACID [Concomitant]
     Active Substance: ASPIRIN
     Indication: PRODUCT USED FOR UNKNOWN INDICATION
  6. VITAMIN B12 [Concomitant]
     Active Substance: CYANOCOBALAMIN
     Indication: PRODUCT USED FOR UNKNOWN INDICATION
  7. PRAMIPEXOL [Concomitant]
     Active Substance: PRAMIPEXOLE
     Route: 048
  8. CLOPIDOGREL [Concomitant]
     Active Substance: CLOPIDOGREL BISULFATE
     Indication: PRODUCT USED FOR UNKNOWN INDICATION
  9. ATORVASTATIN [Concomitant]
     Active Substance: ATORVASTATIN
     Indication: PRODUCT USED FOR UNKNOWN INDICATION
  10. OXAZEPAM. [Concomitant]
     Active Substance: OXAZEPAM
     Indication: PRODUCT USED FOR UNKNOWN INDICATION
  11. PRAMIPEXOL [Concomitant]
     Active Substance: PRAMIPEXOLE
     Indication: PARKINSON^S DISEASE
     Dosage: 2 UNITS OF 0.26 MG ONCE DAILY AND AN UNKNOWN UNIT DOSE OF 3.15 MG ONCE DAILY
     Route: 048
  12. DUODOPA [Suspect]
     Active Substance: CARBIDOPA\LEVODOPA
     Dosage: MD=10ML, CD=3.2ML/HR DURING 16HRS, ED=3.7ML
     Route: 050
     Dates: start: 20200520
  13. MAGNESIUM [Concomitant]
     Active Substance: MAGNESIUM
     Indication: PRODUCT USED FOR UNKNOWN INDICATION

REACTIONS (2)
  - Ulcer [Recovering/Resolving]
  - Gastric perforation [Recovering/Resolving]

NARRATIVE: CASE EVENT DATE: 2020
